FAERS Safety Report 8821483 (Version 1)
Quarter: 2012Q4

REPORT INFORMATION
  Report Type: 
  Country: US (occurrence: US)
  Receive Date: 20121002
  Receipt Date: 20121002
  Transmission Date: 20130627
  Serious: No
  Sender: FDA-Public Use
  Company Number: US-ASTRAZENECA-2012SE73814

PATIENT
  Age: 71 Year
  Sex: Female
  Weight: 53.1 kg

DRUGS (15)
  1. PULMICORT FLEXHALER [Suspect]
     Indication: ASTHMA
     Dosage: 180 MCG 1 PUFF BID
     Route: 055
     Dates: start: 2011
  2. SYMBICORT PMDI [Suspect]
     Indication: ASTHMA
     Route: 055
  3. PREMARIN VAGINAL CREAM [Concomitant]
  4. SYSTANE EYE DROPS [Concomitant]
  5. METHOTREXATE [Concomitant]
     Indication: RHEUMATOID ARTHRITIS
  6. PREDNISONE [Concomitant]
     Indication: RHEUMATOID ARTHRITIS
  7. SOMA [Concomitant]
     Indication: TEMPOROMANDIBULAR JOINT SYNDROME
  8. METROGEL [Concomitant]
  9. HYDROXCHLOROQUINE [Concomitant]
     Indication: RHEUMATOID ARTHRITIS
  10. OMEPRAZOLE [Concomitant]
     Indication: GASTROINTESTINAL DISORDER
  11. OMEGA 3 [Concomitant]
  12. PILOCARPINE [Concomitant]
     Indication: SJOGREN^S SYNDROME
  13. CITRACAL WITH D [Concomitant]
  14. MVI [Concomitant]
  15. ERYTHROMYCIN GEL [Concomitant]
     Indication: ROSACEA

REACTIONS (9)
  - Bronchitis [Recovered/Resolved]
  - Decreased appetite [Recovering/Resolving]
  - Weight decreased [Recovering/Resolving]
  - Dental caries [Unknown]
  - Temporomandibular joint syndrome [Unknown]
  - Rheumatoid arthritis [Unknown]
  - Tremor [Unknown]
  - Oedema peripheral [Unknown]
  - Malaise [Unknown]
